FAERS Safety Report 10355061 (Version 1)
Quarter: 2014Q3

REPORT INFORMATION
  Report Type: Spontaneous
  Country: US (occurrence: None)
  Receive Date: 20140729
  Receipt Date: 20140729
  Transmission Date: 20150326
  Serious: No
  Sender: FDA-Public Use
  Company Number: None

PATIENT
  Age: 19 Year
  Sex: Female
  Weight: 74.84 kg

DRUGS (2)
  1. NEXPLANON [Suspect]
     Active Substance: ETONOGESTREL
     Indication: CONTRACEPTION
     Dates: start: 20140315, end: 20140727
  2. NEXPLANON [Suspect]
     Active Substance: ETONOGESTREL
     Indication: MENSTRUATION IRREGULAR
     Dates: start: 20140315, end: 20140727

REACTIONS (5)
  - Menstruation irregular [None]
  - Thinking abnormal [None]
  - Crying [None]
  - Nervousness [None]
  - Emotional disorder [None]

NARRATIVE: CASE EVENT DATE: 20140727
